FAERS Safety Report 9280852 (Version 1)
Quarter: 2013Q2

REPORT INFORMATION
  Report Type: Spontaneous
  Country: CM (occurrence: None)
  Receive Date: 20130503
  Receipt Date: 20130503
  Transmission Date: 20140414
  Serious: Yes (Hospitalization)
  Sender: FDA-Public Use
  Company Number: 2013P1005181

PATIENT
  Age: 27 Year
  Sex: Male

DRUGS (2)
  1. ALBENDAZOLE [Suspect]
     Indication: FILARIASIS LYMPHATIC
     Dates: start: 20120726
  2. MECTIZAN [Suspect]
     Dates: start: 20130726

REACTIONS (4)
  - Altered state of consciousness [None]
  - Asthenia [None]
  - Pyrexia [None]
  - Conjunctival hyperaemia [None]
